FAERS Safety Report 9348589 (Version 3)
Quarter: 2013Q2

REPORT INFORMATION
  Report Type: Spontaneous
  Country: US (occurrence: US)
  Receive Date: 20130614
  Receipt Date: 20130624
  Transmission Date: 20140414
  Serious: No
  Sender: FDA-Public Use
  Company Number: US-PFIZER INC-2013178646

PATIENT
  Sex: Female

DRUGS (3)
  1. SERTRALINE HCL [Suspect]
     Indication: DEPRESSION
     Dosage: 12.5 MG (HALF OF 25 MG), 1X/DAY
     Route: 048
     Dates: start: 20130609
  2. SERTRALINE HCL [Suspect]
     Indication: OBSESSIVE-COMPULSIVE DISORDER
  3. TEGRETOL [Concomitant]
     Indication: CONVULSION
     Dosage: 200 MG, 2X/DAY

REACTIONS (13)
  - Nausea [Unknown]
  - Gastrointestinal disorder [Unknown]
  - Anxiety [Unknown]
  - Somnolence [Unknown]
  - Disorientation [Unknown]
  - Apathy [Not Recovered/Not Resolved]
  - Feeling abnormal [Unknown]
  - Chest pain [Unknown]
  - Hyperhidrosis [Unknown]
  - Sleep disorder [Recovering/Resolving]
  - Therapeutic response unexpected [Unknown]
  - Pain in extremity [Not Recovered/Not Resolved]
  - Burning sensation [Not Recovered/Not Resolved]
